FAERS Safety Report 8971376 (Version 2)
Quarter: 2013Q1

REPORT INFORMATION
  Report Type: Spontaneous
  Country: US (occurrence: US)
  Receive Date: 20121218
  Receipt Date: 20130207
  Transmission Date: 20140127
  Serious: No
  Sender: FDA-Public Use
  Company Number: US-PFIZER INC-2012320580

PATIENT
  Age: 62 Year
  Sex: Female
  Weight: 77 kg

DRUGS (11)
  1. CHANTIX [Suspect]
     Indication: SMOKING CESSATION THERAPY
     Dosage: 0.5 MG, 1X/DAY
     Route: 048
     Dates: start: 201212
  2. CHANTIX [Suspect]
     Dosage: UNK
     Route: 048
  3. TWYNSTA [Concomitant]
     Indication: HYPERTENSION
     Dosage: UNK
  4. NEXIUM [Concomitant]
     Dosage: 40 MG, UNK
  5. ATORVASTATIN [Concomitant]
     Indication: BLOOD CHOLESTEROL INCREASED
     Dosage: 20 MG, UNK
  6. PRISTIQ [Concomitant]
     Dosage: 100 MG, UNK
  7. FENOFIBRATE [Concomitant]
     Indication: BLOOD CHOLESTEROL INCREASED
     Dosage: UNK
  8. TOVIAZ [Concomitant]
     Indication: BLADDER DISORDER
     Dosage: 8 MG, UNK
  9. ZOLPIDEM [Concomitant]
     Indication: SLEEP DISORDER
     Dosage: UNK
  10. LEVOTHYROXINE [Concomitant]
     Dosage: 150 UG, UNK
  11. ASPIRIN [Concomitant]
     Dosage: 81 MG, UNK

REACTIONS (1)
  - Vision blurred [Not Recovered/Not Resolved]
